FAERS Safety Report 8503522-7 (Version None)
Quarter: 2012Q3

REPORT INFORMATION
  Report Type: 
  Country: None (occurrence: None)
  Receive Date: 20120702
  Receipt Date: 20120618
  Transmission Date: 20120928
  Serious: Yes (Hospitalization, Other)
  Sender: FDA-Public Use
  Company Number: 2012MA007717

PATIENT
  Age: 49 Year
  Sex: Female

DRUGS (2)
  1. HALOPERIDOL LACTATE [Suspect]
     Dates: start: 20080801, end: 20090301
  2. METHYLPARABEN [Concomitant]

REACTIONS (9)
  - SOMNOLENCE [None]
  - TOXICITY TO VARIOUS AGENTS [None]
  - EXTRAPYRAMIDAL DISORDER [None]
  - DYSKINESIA [None]
  - MUSCLE RIGIDITY [None]
  - VISION BLURRED [None]
  - TARDIVE DYSKINESIA [None]
  - TACHYCARDIA [None]
  - HYPOTENSION [None]
